FAERS Safety Report 10209936 (Version 1)
Quarter: 2014Q2

REPORT INFORMATION
  Report Type: Spontaneous
  Country: PL (occurrence: PL)
  Receive Date: 20140602
  Receipt Date: 20140602
  Transmission Date: 20141212
  Serious: Yes (Other)
  Sender: FDA-Public Use
  Company Number: PHHY2014PL065742

PATIENT
  Age: 52 Year
  Sex: Male

DRUGS (5)
  1. ATIMOS [Suspect]
     Indication: ASTHMA
     Dosage: 24 UG, DAILY
     Route: 055
     Dates: start: 2009, end: 20140208
  2. MIFLONIDE [Concomitant]
     Dosage: 400 UG, BID
  3. THEOSPIREX//THEOPHYLLINE [Concomitant]
     Dosage: UNK
  4. AMERTIL [Concomitant]
     Dosage: UNK
  5. ROZALIN [Concomitant]
     Dosage: UNK

REACTIONS (6)
  - Dysaesthesia [Recovered/Resolved]
  - Dysarthria [Recovered/Resolved]
  - Dizziness [Recovered/Resolved]
  - Anxiety [Recovered/Resolved]
  - Heart rate increased [Recovered/Resolved]
  - Palpitations [Recovered/Resolved]
